FAERS Safety Report 23830941 (Version 1)
Quarter: 2024Q2

REPORT INFORMATION
  Report Type: Spontaneous
  Country: DE (occurrence: DE)
  Receive Date: 20240508
  Receipt Date: 20240508
  Transmission Date: 20240716
  Serious: Yes (Hospitalization)
  Sender: FDA-Public Use
  Company Number: DE-ROCHE-3539236

PATIENT
  Age: 45 Year
  Sex: Female

DRUGS (5)
  1. CYCLOPHOSPHAMIDE [Suspect]
     Active Substance: CYCLOPHOSPHAMIDE
     Indication: Diffuse large B-cell lymphoma
     Dosage: ON 28/MAR/2024, SHE RECEIVED MOST RECENT DOSE OF CYCLOPHOSPHAMIDE 1447.5 MG PRIOR TO AE ONSET.
     Route: 042
  2. DOXORUBICIN [Suspect]
     Active Substance: DOXORUBICIN
     Indication: Diffuse large B-cell lymphoma
     Dosage: ON 28/MAR/2024, SHE RECEIVED MOST RECENT DOSE OF DOXORUBICIN 96.5 MG PRIOR TO AE ONSET.
     Route: 042
  3. PREDNISONE [Suspect]
     Active Substance: PREDNISONE
     Indication: Diffuse large B-cell lymphoma
     Dosage: ON 28/MAR/2024, SHE RECEIVED MOST RECENT DOSE OF PREDNISONE 100 MG PRIOR TO AE ONSET
     Route: 048
  4. POLATUZUMAB VEDOTIN [Concomitant]
     Active Substance: POLATUZUMAB VEDOTIN
     Indication: Diffuse large B-cell lymphoma
     Dosage: ON 28/MAR/2024, SHE RECEIVED MOST RECENT DOSE OF POLATUZUMAB VEDOTIN 156.6 MG PRIOR TO AE ONSET.
     Route: 065
  5. RITUXIMAB [Concomitant]
     Active Substance: RITUXIMAB
     Indication: Diffuse large B-cell lymphoma
     Dosage: ON 28/MAR/2024, SHE RECEIVED MOST RECENT DOSE OF RITUXIMAB 723.75 MG PRIOR TO AE ONSET
     Route: 065

REACTIONS (1)
  - Vomiting [Recovered/Resolved]

NARRATIVE: CASE EVENT DATE: 20240329
